FAERS Safety Report 5903410-6 (Version None)
Quarter: 2008Q3

REPORT INFORMATION
  Report Type: 
  Country: None (occurrence: None)
  Receive Date: 20080930
  Receipt Date: 20080922
  Transmission Date: 20090109
  Serious: Yes (Life-Threatening, Hospitalization, Disabling)
  Sender: FDA-Public Use
  Company Number: DK-BAYER-200826926GPV

PATIENT
  Age: 19 Year
  Sex: Male
  Weight: 75 kg

DRUGS (2)
  1. FLUDARA [Suspect]
     Indication: BONE MARROW TRANSPLANT
     Route: 042
     Dates: start: 20071028, end: 20071031
  2. ATRIANCE / NELARABINE [Interacting]
     Indication: ADULT T-CELL LYMPHOMA/LEUKAEMIA
     Route: 042
     Dates: start: 20070606, end: 20070701

REACTIONS (1)
  - MYELITIS TRANSVERSE [None]
